FAERS Safety Report 6968416-7 (Version None)
Quarter: 2010Q3

REPORT INFORMATION
  Report Type: 
  Country: None (occurrence: None)
  Receive Date: 20100903
  Receipt Date: 20100903
  Transmission Date: 20110219
  Serious: Yes (Other)
  Sender: FDA-Public Use
  Company Number: None

PATIENT
  Sex: Female
  Weight: 60.3284 kg

DRUGS (2)
  1. PROTONIX [Suspect]
     Indication: DYSPEPSIA
     Dosage: ONE A DAY DAILY PO
     Route: 048
     Dates: start: 20100707, end: 20100715
  2. PROTONIX [Suspect]
     Indication: SCLERODERMA
     Dosage: ONE A DAY DAILY PO
     Route: 048
     Dates: start: 20100707, end: 20100715

REACTIONS (5)
  - EAR PAIN [None]
  - GLOSSODYNIA [None]
  - NASOPHARYNGITIS [None]
  - OROPHARYNGEAL PAIN [None]
  - THROAT IRRITATION [None]
